FAERS Safety Report 4500135-9 (Version None)
Quarter: 2004Q4

REPORT INFORMATION
  Report Type: 
  Country: None (occurrence: None)
  Receive Date: 20041112
  Receipt Date: 20041012
  Transmission Date: 20050328
  Serious: Yes (Other)
  Sender: FDA-Public Use
  Company Number: BE-ROCHE-383172

PATIENT
  Age: 17 Year
  Sex: Male
  Weight: 65 kg

DRUGS (1)
  1. ROACCUTANE [Suspect]
     Indication: ACNE
     Route: 048
     Dates: start: 20040828, end: 20041011

REACTIONS (5)
  - CONJUNCTIVITIS [None]
  - EXANTHEM [None]
  - PERIORBITAL OEDEMA [None]
  - STAPHYLOCOCCAL INFECTION [None]
  - TOXIC SKIN ERUPTION [None]
